FAERS Safety Report 10179331 (Version 2)
Quarter: 2014Q2

REPORT INFORMATION
  Report Type: Spontaneous
  Country: US (occurrence: US)
  Receive Date: 20140519
  Receipt Date: 20140627
  Transmission Date: 20141212
  Serious: Yes (Disabling)
  Sender: FDA-Public Use
  Company Number: US-SA-2014SA059543

PATIENT
  Age: 58 Year
  Sex: Female

DRUGS (12)
  1. LANTUS SOLOSTAR [Suspect]
     Indication: TYPE 1 DIABETES MELLITUS
     Dosage: DOSE:8 UNIT(S)
     Route: 065
     Dates: start: 201301
  2. LANTUS SOLOSTAR [Suspect]
     Indication: TYPE 1 DIABETES MELLITUS
     Route: 065
  3. SOLOSTAR [Concomitant]
     Indication: TYPE 1 DIABETES MELLITUS
     Dates: start: 201301
  4. SOLOSTAR [Concomitant]
     Indication: TYPE 1 DIABETES MELLITUS
  5. HYDRALAZINE [Concomitant]
  6. FUROSEMIDE [Concomitant]
  7. METOPROLOL [Concomitant]
  8. PANTOPRAZOLE [Concomitant]
  9. COUMADIN [Concomitant]
  10. CLONIDINE HYDROCHLORIDE [Concomitant]
  11. NOVOLOG [Concomitant]
     Dosage: SLIDING SCALE
  12. ASPIRIN [Concomitant]

REACTIONS (2)
  - Cardiac disorder [Unknown]
  - Drug administration error [Unknown]
